FAERS Safety Report 9301545 (Version 1)
Quarter: 2013Q2

REPORT INFORMATION
  Report Type: Spontaneous
  Country: US (occurrence: None)
  Receive Date: 20130520
  Receipt Date: 20130520
  Transmission Date: 20140414
  Serious: Yes (Other)
  Sender: FDA-Public Use
  Company Number: None

PATIENT
  Sex: Female

DRUGS (1)
  1. ENBREL 50 MG [Suspect]
     Indication: RHEUMATOID ARTHRITIS
     Route: 058
     Dates: start: 201304

REACTIONS (6)
  - Anaphylactic reaction [None]
  - Pain [None]
  - Headache [None]
  - Feeling abnormal [None]
  - Swelling [None]
  - Cerebrovascular accident [None]
